FAERS Safety Report 9733984 (Version 2)
Quarter: 2013Q4

REPORT INFORMATION
  Report Type: Spontaneous
  Country: US (occurrence: US)
  Receive Date: 20131205
  Receipt Date: 20131216
  Transmission Date: 20140711
  Serious: No
  Sender: FDA-Public Use
  Company Number: US-009507513-1311USA010409

PATIENT
  Age: 72 Year
  Sex: Male

DRUGS (3)
  1. AZASITE [Suspect]
     Indication: VISION BLURRED
     Dosage: 2 GTT, QD
     Route: 047
     Dates: start: 20131115
  2. RESTASIS [Concomitant]
     Dosage: UNK
  3. CRESTOR [Concomitant]
     Dosage: UNK

REACTIONS (8)
  - Abnormal sensation in eye [Not Recovered/Not Resolved]
  - Vision blurred [Not Recovered/Not Resolved]
  - Drug dose omission [Unknown]
  - Underdose [Unknown]
  - Product label issue [Unknown]
  - Liquid product physical issue [Unknown]
  - Product packaging quantity issue [Unknown]
  - Product quality issue [Unknown]
